FAERS Safety Report 6848570-8 (Version None)
Quarter: 2010Q3

REPORT INFORMATION
  Report Type: 
  Country: None (occurrence: None)
  Receive Date: 20100716
  Receipt Date: 20100715
  Transmission Date: 20110219
  Serious: Yes (Other)
  Sender: FDA-Public Use
  Company Number: ES-ROXANE LABORATORIES, INC.-2010-RO-00852RO

PATIENT
  Age: 72 Year
  Sex: Male

DRUGS (6)
  1. LIDOCAINE [Suspect]
     Indication: LOCAL ANAESTHESIA
  2. BUPIVACAINE HCL [Suspect]
     Indication: LOCAL ANAESTHESIA
  3. HYALURONIDASE [Suspect]
     Indication: LOCAL ANAESTHESIA
  4. ATROPINE [Suspect]
     Dosage: 0.8 MG
     Route: 042
  5. PROPOFOL [Suspect]
  6. SUCCINYLCHOLINE [Suspect]

REACTIONS (6)
  - BRONCHOSPASM [None]
  - HYPOVENTILATION [None]
  - LOSS OF CONSCIOUSNESS [None]
  - OXYGEN SATURATION DECREASED [None]
  - RESPIRATORY DEPRESSION [None]
  - WHEEZING [None]
